FAERS Safety Report 14342985 (Version 1)
Quarter: 2017Q4

REPORT INFORMATION
  Report Type: Spontaneous
  Country: US (occurrence: US)
  Receive Date: 20171229
  Receipt Date: 20171229
  Transmission Date: 20180321
  Serious: No
  Sender: FDA-Public Use
  Company Number: None

PATIENT
  Sex: Male

DRUGS (2)
  1. LISINOPRIL. [Concomitant]
     Active Substance: LISINOPRIL
  2. LEVEMIR [Suspect]
     Active Substance: INSULIN DETEMIR
     Indication: DIABETES MELLITUS
     Dosage: ?          QUANTITY:70 INJECTION(S);?
     Route: 058
     Dates: start: 20170801

REACTIONS (11)
  - Pollakiuria [None]
  - Thirst [None]
  - Limb discomfort [None]
  - Weight increased [None]
  - Tachycardia [None]
  - Dyspnoea [None]
  - Injection site reaction [None]
  - Rash [None]
  - Confusional state [None]
  - Muscular weakness [None]
  - Wheezing [None]

NARRATIVE: CASE EVENT DATE: 20170801
